FAERS Safety Report 4523156-9 (Version None)
Quarter: 2004Q4

REPORT INFORMATION
  Report Type: 
  Country: None (occurrence: None)
  Receive Date: 20041208
  Receipt Date: 20041125
  Transmission Date: 20050328
  Serious: Yes (Death, Other)
  Sender: FDA-Public Use
  Company Number: 2004016393

PATIENT
  Age: 68 Year
  Sex: Male

DRUGS (3)
  1. ATORVASTATIN (ATORVASTATIN) [Suspect]
     Indication: AORTIC ANEURYSM
     Dosage: 1 IN 1 D
     Dates: start: 20011001
  2. SIMVASTATIN [Suspect]
     Indication: AORTIC ANEURYSM
     Dosage: 1 IN 1 D
     Dates: start: 19951201, end: 20011001
  3. OMEPRAZOLE [Suspect]
     Indication: ILL-DEFINED DISORDER

REACTIONS (6)
  - ALVEOLITIS FIBROSING [None]
  - CONDITION AGGRAVATED [None]
  - EMPHYSEMA [None]
  - FEELING ABNORMAL [None]
  - PULMONARY FIBROSIS [None]
  - RESPIRATORY FAILURE [None]
